FAERS Safety Report 5563592-5 (Version None)
Quarter: 2007Q4

REPORT INFORMATION
  Report Type: 
  Country: None (occurrence: None)
  Receive Date: 20071217
  Receipt Date: 20070912
  Transmission Date: 20080405
  Serious: No
  Sender: FDA-Public Use
  Company Number: US-ASTRAZENECA-2007UW16403

PATIENT
  Age: 76 Year
  Sex: Female
  Weight: 63.5 kg

DRUGS (4)
  1. CRESTOR [Suspect]
     Indication: DYSLIPIDAEMIA
     Route: 048
     Dates: start: 20070701, end: 20070713
  2. TOPROL-XL [Concomitant]
     Route: 048
  3. FOSAMAX [Concomitant]
  4. CARDIZEM [Concomitant]

REACTIONS (2)
  - DEAFNESS [None]
  - VISUAL DISTURBANCE [None]
